FAERS Safety Report 6267149-2 (Version None)
Quarter: 2009Q3

REPORT INFORMATION
  Report Type: 
  Country: None (occurrence: None)
  Receive Date: 20090710
  Receipt Date: 20090626
  Transmission Date: 20100115
  Serious: Yes (Death)
  Sender: FDA-Public Use
  Company Number: 1000007281

PATIENT
  Age: 42 Year
  Sex: Male

DRUGS (3)
  1. CELEXA [Suspect]
     Dosage: 20 MG (20 MG, 1 IN 1 D), ORAL
     Route: 048
  2. CLOZARIL [Suspect]
     Dosage: 500 MG (500 MG, 1 IN 1 D)
  3. CLOZARIL [Suspect]
     Dosage: 50 MG, AS REQUIRED

REACTIONS (7)
  - AORTIC STENOSIS [None]
  - CARDIAC ARREST [None]
  - CARDIAC DISORDER [None]
  - CROHN'S DISEASE [None]
  - MYOCARDIAL INFARCTION [None]
  - PNEUMONIA [None]
  - SYNCOPE [None]
